FAERS Safety Report 13713425 (Version 5)
Quarter: 2018Q4

REPORT INFORMATION
  Report Type: Spontaneous
  Country: PT (occurrence: PT)
  Receive Date: 20170704
  Receipt Date: 20181126
  Transmission Date: 20190204
  Serious: Yes (Other)
  Sender: FDA-Public Use
  Company Number: PT-BIOGEN-2017BI00424212

PATIENT
  Age: 42 Year
  Sex: Female
  Weight: 45 kg

DRUGS (5)
  1. SERTRALINE [Concomitant]
     Active Substance: SERTRALINE HYDROCHLORIDE
     Indication: DEPRESSION
     Route: 048
     Dates: start: 2015
  2. TECFIDERA [Suspect]
     Active Substance: DIMETHYL FUMARATE
     Indication: MULTIPLE SCLEROSIS
     Dosage: EXPIRY DATE: 20 JUN 2018. DOSE INCREASED FROM 12 MG, 12.12 HOURS TO 240 MG, 12/12 HOURS.12 H
     Route: 048
     Dates: start: 20170418, end: 20170424
  3. TECFIDERA [Suspect]
     Active Substance: DIMETHYL FUMARATE
     Dosage: EXPIRY DATE: 20 JUN 2018. DOSE INCREASED FROM 12 MG, 12.12 HOURS TO 240 MG, 12/12 HOURS.12 H
     Route: 048
     Dates: start: 20170425
  4. LEPICORTINOLO [Concomitant]
     Active Substance: PREDNISOLONE
     Indication: IMMUNE THROMBOCYTOPENIC PURPURA
     Route: 048
  5. LORSEDAL [Concomitant]
     Active Substance: LORAZEPAM
     Indication: ANXIETY
     Route: 048
     Dates: start: 2015

REACTIONS (8)
  - Thrombocytopenia [Recovered/Resolved]
  - Feeling hot [Unknown]
  - Erythema [Unknown]
  - Anaemia [Unknown]
  - Abdominal pain upper [Recovered/Resolved]
  - Lymphopenia [Not Recovered/Not Resolved]
  - Headache [Recovered/Resolved]
  - Abdominal pain [Recovered/Resolved]

NARRATIVE: CASE EVENT DATE: 201704
